FAERS Safety Report 7540467-3 (Version None)
Quarter: 2011Q2

REPORT INFORMATION
  Report Type: 
  Country: None (occurrence: None)
  Receive Date: 20110610
  Receipt Date: 20110603
  Transmission Date: 20111010
  Serious: Yes (Hospitalization)
  Sender: FDA-Public Use
  Company Number: A0788555A

PATIENT
  Age: 67 Year
  Sex: Male
  Weight: 136.4 kg

DRUGS (3)
  1. VASOTEC [Concomitant]
  2. AVANDIA [Suspect]
     Indication: DIABETES MELLITUS
     Dosage: 4MG PER DAY
     Route: 048
     Dates: start: 20060301, end: 20070101
  3. GLYNASE [Concomitant]

REACTIONS (3)
  - MYOCARDIAL INFARCTION [None]
  - HYPERTENSIVE EMERGENCY [None]
  - CARDIAC FAILURE CONGESTIVE [None]
